FAERS Safety Report 6974981-6 (Version None)
Quarter: 2010Q3

REPORT INFORMATION
  Report Type: 
  Country: None (occurrence: None)
  Receive Date: 20100909
  Receipt Date: 20090122
  Transmission Date: 20110219
  Serious: No
  Sender: FDA-Public Use
  Company Number: US-WYE-H07838509

PATIENT
  Age: 46 Year
  Sex: Female

DRUGS (3)
  1. PRISTIQ [Suspect]
     Dosage: UNKNOWN
     Route: 048
  2. PRISTIQ [Suspect]
     Route: 048
     Dates: end: 20090101
  3. PRISTIQ [Suspect]
     Dosage: 50 MG, EVERY 2 DAYS
     Route: 048
     Dates: start: 20090101

REACTIONS (2)
  - DRUG WITHDRAWAL SYNDROME [None]
  - TONGUE DISORDER [None]
